FAERS Safety Report 10559019 (Version 2)
Quarter: 2014Q4

REPORT INFORMATION
  Report Type: Spontaneous
  Country: GB (occurrence: GB)
  Receive Date: 20141103
  Receipt Date: 20141124
  Transmission Date: 20150529
  Serious: Yes (Other)
  Sender: FDA-Public Use
  Company Number: GB-ACCORD-026699

PATIENT
  Age: 75 Year
  Sex: Female
  Weight: 57 kg

DRUGS (3)
  1. GABAPENTIN. [Suspect]
     Active Substance: GABAPENTIN
     Indication: PRODUCT USED FOR UNKNOWN INDICATION
  2. AMITRIPTYLINE [Suspect]
     Active Substance: AMITRIPTYLINE
     Indication: PRODUCT USED FOR UNKNOWN INDICATION
  3. LYRICA [Suspect]
     Active Substance: PREGABALIN
     Indication: NEURALGIA
     Dosage: 25MG OR 50MG DAILY.
     Route: 048
     Dates: start: 20140225

REACTIONS (22)
  - Vision blurred [Unknown]
  - Constipation [Unknown]
  - Loss of consciousness [Unknown]
  - Agitation [Unknown]
  - Swelling face [Unknown]
  - Arthralgia [Unknown]
  - Crying [Unknown]
  - Myalgia [Unknown]
  - Pain [Unknown]
  - Dizziness [Unknown]
  - Lip swelling [Unknown]
  - Headache [Not Recovered/Not Resolved]
  - Feeling abnormal [Unknown]
  - Feeling of despair [Unknown]
  - Malaise [Unknown]
  - Back pain [Unknown]
  - Pain in extremity [Unknown]
  - Memory impairment [Unknown]
  - Asthenia [Unknown]
  - Drug dependence [Unknown]
  - Rash [Unknown]
  - Thinking abnormal [Unknown]

NARRATIVE: CASE EVENT DATE: 2014
